FAERS Safety Report 16029867 (Version 1)
Quarter: 2019Q1

REPORT INFORMATION
  Report Type: Report from Study
  Country: US (occurrence: US)
  Receive Date: 20190304
  Receipt Date: 20190304
  Transmission Date: 20190418
  Serious: Yes (Hospitalization)
  Sender: FDA-Public Use
  Company Number: US-TEVA-2019-US-1019592

PATIENT
  Sex: Female

DRUGS (1)
  1. AUSTEDO [Suspect]
     Active Substance: DEUTETRABENAZINE
     Indication: TARDIVE DYSKINESIA
     Dosage: NEW TITRATING PATIENT
     Route: 065
     Dates: start: 20180525

REACTIONS (5)
  - Tremor [Recovering/Resolving]
  - Apathy [Recovering/Resolving]
  - Mental disorder [Recovering/Resolving]
  - Suspected suicide attempt [Recovering/Resolving]
  - Hallucination, auditory [Recovering/Resolving]
